FAERS Safety Report 20232640 (Version 1)
Quarter: 2021Q4

REPORT INFORMATION
  Report Type: Spontaneous
  Country: US (occurrence: None)
  Receive Date: 20211223
  Receipt Date: 20211223
  Transmission Date: 20220303
  Serious: No
  Sender: FDA-Public Use
  Company Number: None

PATIENT
  Sex: Female

DRUGS (4)
  1. HUMIRA [Suspect]
     Active Substance: ADALIMUMAB
     Indication: Crohn^s disease
     Dosage: OTHER QUANTITY : 40MG/04ML;?FREQUENCY : EVERY OTHER WEEK;?
     Route: 058
     Dates: start: 20190614
  2. FOCALIN TAB [Concomitant]
  3. KP VITAMIN D [Concomitant]
  4. RANITIDINE TAB [Concomitant]

REACTIONS (2)
  - COVID-19 [None]
  - Therapy interrupted [None]
